FAERS Safety Report 19067505 (Version 1)
Quarter: 2021Q1

REPORT INFORMATION
  Report Type: Spontaneous
  Country: IN (occurrence: IN)
  Receive Date: 20210329
  Receipt Date: 20210329
  Transmission Date: 20210420
  Serious: Yes (Life-Threatening, Other)
  Sender: FDA-Public Use
  Company Number: NVSC2021IN070866

PATIENT
  Sex: Female

DRUGS (9)
  1. PROSURE [Concomitant]
     Indication: PRODUCT USED FOR UNKNOWN INDICATION
     Dosage: UNK (9 SCOOPS DAILY)
     Route: 065
  2. ONDEM [Concomitant]
     Indication: VOMITING
  3. ONDEM [Concomitant]
     Indication: NAUSEA
     Dosage: 8 MG (SOS)
     Route: 065
  4. PYRIGESIC [Concomitant]
     Indication: PAIN
     Dosage: 1  DF (SOS)
     Route: 065
  5. BETADINE [Concomitant]
     Active Substance: POVIDONE-IODINE
     Indication: PRODUCT USED FOR UNKNOWN INDICATION
     Dosage: UNK (TDS)
     Route: 061
  6. PAUSE [Concomitant]
     Indication: PRODUCT USED FOR UNKNOWN INDICATION
     Dosage: 1 DF (SOS)
     Route: 065
  7. LETROZOL [Suspect]
     Active Substance: LETROZOLE
     Indication: BREAST CANCER
     Dosage: 2.5 MG, QD (CYCLE 4)
     Route: 065
  8. KRYXANA [Suspect]
     Active Substance: RIBOCICLIB
     Indication: BREAST CANCER
     Dosage: UNK (CYCLE 4)
     Route: 065
  9. SHELCAL [Concomitant]
     Active Substance: CALCIUM CARBONATE\CHOLECALCIFEROL
     Indication: PRODUCT USED FOR UNKNOWN INDICATION
     Dosage: 1 DF, QD
     Route: 065

REACTIONS (6)
  - Ulcer haemorrhage [Unknown]
  - White matter lesion [Unknown]
  - Hyponatraemia [Unknown]
  - Swelling [Unknown]
  - Hypomagnesaemia [Unknown]
  - Skin lesion [Unknown]

NARRATIVE: CASE EVENT DATE: 20201012
